FAERS Safety Report 9685524 (Version 1)
Quarter: 2013Q4

REPORT INFORMATION
  Report Type: Spontaneous
  Country: BR (occurrence: BR)
  Receive Date: 20131113
  Receipt Date: 20131113
  Transmission Date: 20140711
  Serious: Yes (Other)
  Sender: FDA-Public Use
  Company Number: BR-BRISTOL-MYERS SQUIBB COMPANY-19782390

PATIENT
  Age: 56 Year
  Sex: Female
  Weight: 88 kg

DRUGS (3)
  1. KOMBIGLYZE XR [Suspect]
     Indication: DIABETES MELLITUS
     Dosage: 5MG/1000MG 1DF:1 TAB
     Route: 048
     Dates: start: 201306
  2. LOSARTAN [Concomitant]
  3. HYDROCHLOROTHIAZIDE [Concomitant]
     Indication: HYPERTENSION

REACTIONS (2)
  - Urinary tract obstruction [Unknown]
  - Hyperhidrosis [Unknown]
